FAERS Safety Report 9536504 (Version 1)
Quarter: 2013Q2

REPORT INFORMATION
  Report Type: Spontaneous
  Country: US (occurrence: None)
  Receive Date: 20130507
  Receipt Date: 20130507
  Transmission Date: 20140414
  Serious: No
  Sender: FDA-Public Use
  Company Number: PHEH2012US024535

PATIENT
  Age: 44 Year
  Sex: Female

DRUGS (6)
  1. AFINITOR (RAD) UNKNOWN [Suspect]
     Indication: TUBEROUS SCLEROSIS
     Dosage: 10 MG, DAILY, ORAL
     Route: 048
     Dates: start: 20120815
  2. WARFARIN (WARFARIN) [Concomitant]
  3. FLUVOXAMINE (FLUVOXAMINE) [Concomitant]
  4. TEGRETOL (CARBAMAZEPINE) UNKNOWN [Concomitant]
  5. LORAZEPAM (LORASEPAM) [Concomitant]
  6. RESPERIDOL (RESPERIDOL) [Concomitant]

REACTIONS (3)
  - Abnormal behaviour [None]
  - Hostility [None]
  - Blood cholesterol increased [None]
